FAERS Safety Report 6625552-2 (Version None)
Quarter: 2010Q1

REPORT INFORMATION
  Report Type: 
  Country: None (occurrence: None)
  Receive Date: 20100305
  Receipt Date: 20100224
  Transmission Date: 20100710
  Serious: Yes (Hospitalization, Other)
  Sender: FDA-Public Use
  Company Number: 2009SP037342

PATIENT
  Age: 29 Year
  Sex: Female
  Weight: 49.8957 kg

DRUGS (13)
  1. NUVARING [Suspect]
     Indication: CONTRACEPTION
     Dates: start: 20030501, end: 20071116
  2. PREDNISONE (CON.) [Concomitant]
  3. IBUPROFEN (CON.) [Concomitant]
  4. BENADRYL (CON.) [Concomitant]
  5. ALLEGRA (CON.) [Concomitant]
  6. SINGULAIR (CON.) [Concomitant]
  7. ADVAIR (CON.) [Concomitant]
  8. XOPENEX (CON.) [Concomitant]
  9. PULMICORT RESPULES (CON.) [Concomitant]
  10. DIFLUCAN (CON.) [Concomitant]
  11. PROVENTIL HFA (CON.) [Concomitant]
  12. IBUPROFEN (CON.) [Concomitant]
  13. ZOMIG (CON.) [Concomitant]

REACTIONS (11)
  - ANXIETY [None]
  - ATRIAL THROMBOSIS [None]
  - BRONCHITIS [None]
  - DEPRESSION [None]
  - DYSPLASIA [None]
  - MICTURITION URGENCY [None]
  - MUSCLE SPASMS [None]
  - POLLAKIURIA [None]
  - PULMONARY EMBOLISM [None]
  - PULMONARY HYPERTENSION [None]
  - URINARY TRACT INFECTION [None]
